FAERS Safety Report 23322323 (Version 2)
Quarter: 2024Q3

REPORT INFORMATION
  Report Type: Spontaneous
  Country: US (occurrence: US)
  Receive Date: 20231220
  Receipt Date: 20240830
  Transmission Date: 20241017
  Serious: Yes (Other)
  Sender: TAKEDA
  Company Number: US-TAKEDA-2023TUS122207

PATIENT
  Age: 40 Year
  Sex: Female
  Weight: 73 kg

DRUGS (5)
  1. ENTYVIO [Suspect]
     Active Substance: VEDOLIZUMAB
     Indication: Crohn^s disease
     Dosage: 300 MILLIGRAM
     Route: 042
  2. BUDESONIDE [Concomitant]
     Active Substance: BUDESONIDE
     Indication: Crohn^s disease
     Dosage: 4 MILLIGRAM, QD
     Dates: start: 20240307
  3. LEVOTHYROXINE [Concomitant]
     Active Substance: LEVOTHYROXINE\LEVOTHYROXINE SODIUM
     Indication: Hypothyroidism
     Dosage: 88 MILLIGRAM, QD
  4. LABETALOL [Concomitant]
     Active Substance: LABETALOL\LABETALOL HYDROCHLORIDE
     Indication: Hypertension
     Dosage: UNK
     Dates: start: 202404
  5. SERTRALINE [Concomitant]
     Active Substance: SERTRALINE HYDROCHLORIDE
     Indication: Depression
     Dosage: 100 MILLIGRAM, QD
     Route: 048

REACTIONS (2)
  - Gestational hypertension [Unknown]
  - Pregnancy [Recovered/Resolved]

NARRATIVE: CASE EVENT DATE: 20231101
